FAERS Safety Report 24235645 (Version 1)
Quarter: 2024Q3

REPORT INFORMATION
  Report Type: Report from Study
  Country: CO (occurrence: CO)
  Receive Date: 20240822
  Receipt Date: 20240822
  Transmission Date: 20241016
  Serious: Yes (Hospitalization, Other)
  Sender: ABBVIE
  Company Number: CO-ABBVIE-5884210

PATIENT
  Sex: Female
  Weight: 63 kg

DRUGS (9)
  1. VENCLEXTA [Suspect]
     Active Substance: VENETOCLAX
     Indication: Acute myeloid leukaemia
     Dosage: FORM STRENGTH:100 MILLIGRAM
     Route: 048
     Dates: start: 20240214, end: 20240801
  2. BISACODYL [Concomitant]
     Active Substance: BISACODYL
     Indication: Laxative supportive care
     Dosage: FORM STRENGTH: 5 MILLIGRAM
     Route: 048
     Dates: start: 202407
  3. ACYCLOVIR [Concomitant]
     Active Substance: ACYCLOVIR
     Indication: Product used for unknown indication
     Dosage: 400 MILLIGRAM, FORM STRENGTH:200 MILLIGRAM
     Route: 048
     Dates: start: 202402
  4. LOSARTAN [Concomitant]
     Active Substance: LOSARTAN\LOSARTAN POTASSIUM
     Indication: Hypertension
     Dosage: FORM STRENGTH: 50 MILLIGRAM?START DATE TEXT: 4 OR 5 YEARS AGO
     Route: 048
  5. ATORVASTATIN [Concomitant]
     Active Substance: ATORVASTATIN
     Indication: Product used for unknown indication
     Dosage: 80 MILLIGRAM, FORM STRENGTH: 80MG
     Route: 048
     Dates: start: 202407
  6. ATORVASTATIN [Concomitant]
     Active Substance: ATORVASTATIN
     Indication: Product used for unknown indication
     Dosage: 20 MILLIGRAM?START DATE TEXT: YEARS AGO?FORM STRENGTH: 20MG
     Route: 048
     Dates: end: 202407
  7. PREGABALIN [Concomitant]
     Active Substance: PREGABALIN
     Indication: Pain prophylaxis
     Dosage: FORM STRENGTH: 75 MILLIGRAM
     Route: 048
     Dates: start: 202402
  8. OMEPRAZOLE [Concomitant]
     Active Substance: OMEPRAZOLE
     Indication: Gastrointestinal disorder prophylaxis
     Dosage: FORM STRENGTH: 20 MILLIGRAM
     Route: 048
     Dates: start: 202402
  9. FUROSEMIDE [Concomitant]
     Active Substance: FUROSEMIDE
     Indication: Product used for unknown indication
     Dosage: FORM STRENGTH UNITS: 40 MILLIGRAM?START DATE TEXT: YEARS AGO.
     Route: 048

REACTIONS (8)
  - Musculoskeletal disorder [Unknown]
  - Urinary tract infection [Recovering/Resolving]
  - Cerebral microinfarction [Unknown]
  - Pharmacophobia [Unknown]
  - Gastrointestinal infection [Recovering/Resolving]
  - Bacterial infection [Recovering/Resolving]
  - Pyrexia [Recovering/Resolving]
  - Fatigue [Unknown]

NARRATIVE: CASE EVENT DATE: 20240101
